FAERS Safety Report 8253559-0 (Version None)
Quarter: 2012Q2

REPORT INFORMATION
  Report Type: 
  Country: None (occurrence: None)
  Receive Date: 20120402
  Receipt Date: 20120306
  Transmission Date: 20120825
  Serious: No
  Sender: FDA-Public Use
  Company Number: US-AMGEN-USASP2012014677

PATIENT
  Sex: Female

DRUGS (1)
  1. ENBREL [Suspect]
     Indication: PRODUCT USED FOR UNKNOWN INDICATION
     Dosage: UNK

REACTIONS (5)
  - INJECTION SITE WARMTH [None]
  - INJECTION SITE ERYTHEMA [None]
  - RASH PRURITIC [None]
  - INJECTION SITE RASH [None]
  - INJECTION SITE PRURITUS [None]
